FAERS Safety Report 5033322-4 (Version None)
Quarter: 2006Q2

REPORT INFORMATION
  Report Type: 
  Country: None (occurrence: None)
  Receive Date: 20060515
  Receipt Date: 20060224
  Transmission Date: 20061013
  Serious: No
  Sender: FDA-Public Use
  Company Number: S06-USA-00662-02

PATIENT
  Sex: Male

DRUGS (1)
  1. NAMENDA [Suspect]
     Dosage: 10 MG QD TRANSPLACENTAL
     Route: 064

REACTIONS (1)
  - WEIGHT GAIN POOR [None]
